FAERS Safety Report 8389904-5 (Version None)
Quarter: 2012Q2

REPORT INFORMATION
  Report Type: 
  Country: None (occurrence: None)
  Receive Date: 20120529
  Receipt Date: 20120518
  Transmission Date: 20120825
  Serious: Yes (Hospitalization)
  Sender: FDA-Public Use
  Company Number: TW-SANOFI-AVENTIS-2012SA035880

PATIENT
  Age: 31 Year
  Sex: Female

DRUGS (1)
  1. CLOMIPHENE CITRATE [Suspect]
     Indication: OVULATION INDUCTION
     Route: 048

REACTIONS (7)
  - OVARIAN TORSION [None]
  - NAUSEA [None]
  - ABDOMINAL PAIN LOWER [None]
  - ABDOMINAL DISTENSION [None]
  - DYSPNOEA [None]
  - VOMITING [None]
  - CONSTIPATION [None]
